FAERS Safety Report 4523503-8 (Version None)
Quarter: 2004Q4

REPORT INFORMATION
  Report Type: 
  Country: None (occurrence: None)
  Receive Date: 20041209
  Receipt Date: 20041209
  Transmission Date: 20050328
  Serious: Yes (Other)
  Sender: FDA-Public Use
  Company Number: None

PATIENT
  Sex: Female

DRUGS (5)
  1. DOXYCYCLINE [Suspect]
     Indication: BACTERIAL INFECTION
     Dosage: ONE QD, 100 MG
     Dates: start: 20041111, end: 20041121
  2. DOXYCYCLINE [Suspect]
     Indication: FALL
     Dosage: ONE QD, 100 MG
     Dates: start: 20041111, end: 20041121
  3. CLONAZEPAM [Suspect]
     Indication: ANXIETY
     Dosage: .5 MG (1/2 Q AM , ONE HS)
  4. TRAZODONE HCL [Concomitant]
  5. CELEXA [Concomitant]

REACTIONS (1)
  - ANXIETY [None]
